FAERS Safety Report 4887852-6 (Version None)
Quarter: 2006Q1

REPORT INFORMATION
  Report Type: 
  Country: None (occurrence: None)
  Receive Date: 20060123
  Receipt Date: 20050317
  Transmission Date: 20060701
  Serious: Yes (Hospitalization)
  Sender: FDA-Public Use
  Company Number: US-MERCK-0503USA03411

PATIENT
  Age: 61 Year
  Sex: Male
  Weight: 82 kg

DRUGS (21)
  1. VIOXX [Suspect]
     Indication: PAIN
     Route: 048
     Dates: start: 20030501, end: 20040901
  2. VIOXX [Suspect]
     Indication: ARTHRITIS
     Route: 048
     Dates: start: 20030501, end: 20040901
  3. ZESTRIL [Concomitant]
     Route: 065
  4. ZETIA [Concomitant]
     Route: 048
  5. LOPRESSOR [Concomitant]
     Route: 065
  6. HYTRIN [Concomitant]
     Route: 065
  7. PLAVIX [Concomitant]
     Route: 065
  8. WELLBUTRIN [Concomitant]
     Route: 065
  9. IBUPROFEN [Concomitant]
     Route: 065
  10. AMBIEN [Concomitant]
     Route: 065
  11. NEURONTIN [Concomitant]
     Route: 065
  12. ECOTRIN [Concomitant]
     Route: 065
  13. PRINIVIL [Concomitant]
     Route: 048
  14. BETASERON [Concomitant]
     Route: 065
  15. [THERAPY UNSPECIFIED] [Concomitant]
     Route: 065
  16. NITROGLYCERIN [Concomitant]
     Route: 065
  17. TYLENOL (CAPLET) [Concomitant]
     Route: 065
  18. MORPHINE SULFATE [Concomitant]
     Route: 065
  19. LOVENOX [Concomitant]
     Route: 065
  20. COLACE [Concomitant]
     Route: 065
  21. VIAGRA [Concomitant]
     Route: 065

REACTIONS (5)
  - ESCHERICHIA URINARY TRACT INFECTION [None]
  - MYOCARDIAL INFARCTION [None]
  - MYOCARDIAL ISCHAEMIA [None]
  - SYNCOPE [None]
  - URINARY TRACT INFECTION [None]
